FAERS Safety Report 7660062-5 (Version None)
Quarter: 2011Q3

REPORT INFORMATION
  Report Type: 
  Country: None (occurrence: None)
  Receive Date: 20110805
  Receipt Date: 20110803
  Transmission Date: 20111222
  Serious: No
  Sender: FDA-Public Use
  Company Number: US-PFIZER INC-2011178186

PATIENT
  Sex: Male

DRUGS (1)
  1. PRISTIQ [Suspect]
     Indication: DEPRESSION
     Dosage: 50 MG, 1X/DAY
     Route: 048
     Dates: start: 20110720, end: 20110730

REACTIONS (9)
  - FEELING ABNORMAL [None]
  - DRUG INEFFECTIVE [None]
  - WEIGHT DECREASED [None]
  - DRY MOUTH [None]
  - VOMITING [None]
  - CONSTIPATION [None]
  - FATIGUE [None]
  - DECREASED APPETITE [None]
  - HEADACHE [None]
